FAERS Safety Report 12841290 (Version 1)
Quarter: 2016Q4

REPORT INFORMATION
  Report Type: Spontaneous
  Country: US (occurrence: US)
  Receive Date: 20161012
  Receipt Date: 20161012
  Transmission Date: 20170207
  Serious: Yes (Death)
  Sender: FDA-Public Use
  Company Number: US-SAGE PRODUCTS, LLC-1058283

PATIENT
  Age: 93 Year
  Sex: Male
  Weight: 63.64 kg

DRUGS (2)
  1. COMFORT SHIELD BARRIER [Suspect]
     Active Substance: DIMETHICONE
     Indication: INCONTINENCE
     Route: 061
  2. COMFORT BATH WASHCLOTH [Concomitant]
     Route: 061

REACTIONS (6)
  - Cardiac arrest [Fatal]
  - Rash generalised [Fatal]
  - Bacterial sepsis [Fatal]
  - Lung infection [Fatal]
  - Urinary tract infection [Fatal]
  - Skin infection [Fatal]
